FAERS Safety Report 6250059-4 (Version None)
Quarter: 2009Q2

REPORT INFORMATION
  Report Type: 
  Country: None (occurrence: None)
  Receive Date: 20090629
  Receipt Date: 20090619
  Transmission Date: 20091009
  Serious: Yes (Death, Other)
  Sender: FDA-Public Use
  Company Number: ES-MERCK-0906ESP00026

PATIENT
  Age: 49 Year
  Sex: Male

DRUGS (3)
  1. CANCIDAS [Suspect]
     Indication: ENDOCARDITIS CANDIDA
     Route: 042
  2. AMPHOTERICIN B AND CHOLESTEROL AND DISTEAROYLPHOSPHATIDYLGLYCEROL AND [Concomitant]
     Indication: ENDOCARDITIS CANDIDA
     Route: 042
  3. VORICONAZOLE [Concomitant]
     Indication: ENDOCARDITIS CANDIDA
     Route: 065

REACTIONS (6)
  - CATHETER BACTERAEMIA [None]
  - CEREBRAL INFARCTION [None]
  - CEREBROVASCULAR ACCIDENT [None]
  - DRUG INEFFECTIVE [None]
  - ENDOCARDITIS ENTEROCOCCAL [None]
  - OVERDOSE [None]
